FAERS Safety Report 8453536 (Version 3)
Quarter: 2013Q4

REPORT INFORMATION
  Report Type: Spontaneous
  Country: US (occurrence: US)
  Receive Date: 20120312
  Receipt Date: 20131023
  Transmission Date: 20140711
  Serious: Yes (Other)
  Sender: FDA-Public Use
  Company Number: US-B.I. PHARMACEUTICALS,INC./RIDGEFIELD-2012-BP-04320BP

PATIENT
  Sex: Female

DRUGS (8)
  1. SPIRIVA HANDIHALER [Suspect]
     Indication: PRODUCT USED FOR UNKNOWN INDICATION
  2. ADVAIR [Suspect]
     Indication: CHRONIC OBSTRUCTIVE PULMONARY DISEASE
     Route: 055
  3. ALBUTEROL [Suspect]
     Indication: CHRONIC OBSTRUCTIVE PULMONARY DISEASE
     Route: 055
  4. DARBEPOETIN ALFA [Suspect]
     Indication: PRODUCT USED FOR UNKNOWN INDICATION
  5. UNKNOWN MEDICATION [Suspect]
     Indication: RED BLOOD CELL COUNT DECREASED
  6. OXYGEN [Concomitant]
     Route: 065
  7. CANCER CHEMOTHERAPY [Concomitant]
  8. MECHANICAL VENTILATION [Concomitant]

REACTIONS (22)
  - Cataract [Recovered/Resolved]
  - Bronchitis [Recovered/Resolved]
  - Pulmonary congestion [Unknown]
  - Dyspnoea [Unknown]
  - Chronic obstructive pulmonary disease [Unknown]
  - Renal cancer [Unknown]
  - Red blood cell count decreased [Unknown]
  - Feeling abnormal [Unknown]
  - Asthenia [Unknown]
  - Atrial fibrillation [Unknown]
  - Neoplasm malignant [Unknown]
  - Transfusion [Unknown]
  - Malaise [Unknown]
  - Lung neoplasm [Unknown]
  - Lymphadenopathy [Unknown]
  - Memory impairment [Unknown]
  - Stress [Unknown]
  - Nail disorder [Unknown]
  - Electrocardiogram abnormal [Unknown]
  - Stomatitis [Unknown]
  - Diarrhoea [Unknown]
  - Heart rate increased [Unknown]
